FAERS Safety Report 15650315 (Version 1)
Quarter: 2018Q4

REPORT INFORMATION
  Report Type: Spontaneous
  Country: TR (occurrence: TR)
  Receive Date: 20181123
  Receipt Date: 20181123
  Transmission Date: 20190205
  Serious: Yes (Life-Threatening)
  Sender: FDA-Public Use
  Company Number: TR-ABBVIE-18S-161-2566195-00

PATIENT
  Sex: Male
  Weight: 17 kg

DRUGS (9)
  1. ARITMAL [Suspect]
     Active Substance: LIDOCAINE HYDROCHLORIDE
     Indication: INDUCTION OF ANAESTHESIA
     Route: 065
  2. POFOL [Suspect]
     Active Substance: PROPOFOL
     Indication: INDUCTION OF ANAESTHESIA
     Route: 065
  3. SEVORANE [Suspect]
     Active Substance: SEVOFLURANE
     Indication: INDUCTION OF ANAESTHESIA
     Dosage: 100%
     Route: 055
  4. TALINAT [Suspect]
     Active Substance: FENTANYL CITRATE
     Indication: INDUCTION OF ANAESTHESIA
     Route: 065
  5. TECAR [Suspect]
     Active Substance: AMINOPHYLLINE
     Indication: INDUCTION OF ANAESTHESIA
     Dosage: 240 MG/10 ML
     Route: 065
  6. PREDNOL (METHYLPREDNISOLONE) [Suspect]
     Active Substance: METHYLPREDNISOLONE
     Indication: INDUCTION OF ANAESTHESIA
     Route: 065
  7. ESMERON [Suspect]
     Active Substance: ROCURONIUM BROMIDE
     Indication: INDUCTION OF ANAESTHESIA
     Route: 065
  8. DORMICUM (NITRAZEPAM) [Suspect]
     Active Substance: NITRAZEPAM
     Indication: INDUCTION OF ANAESTHESIA
     Route: 065
  9. DEXTRAN [Suspect]
     Active Substance: DEXTRAN
     Indication: PRODUCT USED FOR UNKNOWN INDICATION
     Dosage: 40 MG/500 ML
     Route: 065

REACTIONS (3)
  - Bronchospasm [Recovered/Resolved]
  - Oedema [Recovered/Resolved]
  - Dermatitis allergic [Recovered/Resolved]
